FAERS Safety Report 9120045 (Version 1)
Quarter: 2013Q1

REPORT INFORMATION
  Report Type: Spontaneous
  Country: BR (occurrence: BR)
  Receive Date: 20130226
  Receipt Date: 20130226
  Transmission Date: 20140127
  Serious: Yes (Other)
  Sender: FDA-Public Use
  Company Number: BR-MYLANLABS-2013S1003367

PATIENT
  Age: 44 Year
  Sex: Female
  Weight: 72 kg

DRUGS (4)
  1. PROPOFOL [Suspect]
     Indication: GENERAL ANAESTHESIA
     Dosage: 120MG
     Route: 065
  2. FENTANYL [Suspect]
     Indication: GENERAL ANAESTHESIA
     Dosage: 150 MICROG
     Route: 065
  3. SUXAMETHONIUM CHLORIDE [Suspect]
     Indication: GENERAL ANAESTHESIA
     Dosage: 80MG
     Route: 065
  4. CISATRACURIUM BESILATE [Concomitant]
     Dosage: 10MG
     Route: 065

REACTIONS (7)
  - Cardiac arrest [Recovered/Resolved]
  - Hypotension [Recovered/Resolved]
  - Ventricular fibrillation [Recovered/Resolved]
  - Sinus bradycardia [None]
  - Pulseless electrical activity [None]
  - Ventricular extrasystoles [None]
  - Ventricular tachycardia [None]
